FAERS Safety Report 20978150 (Version 8)
Quarter: 2022Q3

REPORT INFORMATION
  Report Type: Spontaneous
  Country: US (occurrence: US)
  Receive Date: 20220618
  Receipt Date: 20220928
  Transmission Date: 20221026
  Serious: Yes (Death, Life-Threatening, Hospitalization, Other)
  Sender: FDA-Public Use
  Company Number: US-Accord-266574

PATIENT
  Age: 80 Year
  Sex: Male
  Weight: 76.70 kg

DRUGS (31)
  1. GEMCITABINE HYDROCHLORIDE [Suspect]
     Active Substance: GEMCITABINE HYDROCHLORIDE
     Indication: Diffuse large B-cell lymphoma stage IV
     Dosage: 1Q2W
     Route: 042
     Dates: start: 20220512, end: 20220512
  2. OXALIPLATIN [Suspect]
     Active Substance: OXALIPLATIN
     Indication: Diffuse large B-cell lymphoma stage IV
     Dosage: 1Q2W
     Route: 042
     Dates: start: 20220512, end: 20220512
  3. EPCORITAMAB [Suspect]
     Active Substance: EPCORITAMAB
     Indication: Diffuse large B-cell lymphoma stage IV
     Dosage: PRIMING DOSE, SINGLE
     Route: 058
     Dates: start: 20220512, end: 20220512
  4. DIPHENHYDRAMINE [Concomitant]
     Active Substance: DIPHENHYDRAMINE
     Indication: Premedication
     Route: 048
     Dates: start: 20220512, end: 20220519
  5. ACETAMINOPHEN [Concomitant]
     Active Substance: ACETAMINOPHEN
     Indication: Premedication
     Route: 048
     Dates: start: 20220512, end: 20220519
  6. PREDNISONE [Concomitant]
     Active Substance: PREDNISONE
     Indication: Premedication
     Route: 048
     Dates: start: 20220519
  7. ATIVAN [Concomitant]
     Active Substance: LORAZEPAM
     Dates: start: 20220613, end: 20220613
  8. LOVENOX [Concomitant]
     Active Substance: ENOXAPARIN SODIUM
  9. GABAPENTIN [Concomitant]
     Active Substance: GABAPENTIN
     Dates: start: 2020
  10. WELLBUTRIN [Concomitant]
     Active Substance: BUPROPION HYDROCHLORIDE
     Dates: start: 2020
  11. MIDODRINE [Concomitant]
     Active Substance: MIDODRINE
     Dates: start: 2020
  12. KEPPRA [Concomitant]
     Active Substance: LEVETIRACETAM
     Dates: end: 20220603
  13. ACETAMINOPHEN [Concomitant]
     Active Substance: ACETAMINOPHEN
     Dates: start: 2021
  14. ACYCLOVIR [Concomitant]
     Active Substance: ACYCLOVIR
     Dates: start: 202205
  15. CRESTOR [Concomitant]
     Active Substance: ROSUVASTATIN CALCIUM
     Dates: start: 2020
  16. LACTULOSE [Concomitant]
     Active Substance: LACTULOSE
     Dates: start: 2021
  17. CIPROFLOXACIN [Concomitant]
     Active Substance: CIPROFLOXACIN
  18. LOPRESSOR [Concomitant]
     Active Substance: METOPROLOL TARTRATE
  19. CEFEPIME [Concomitant]
     Active Substance: CEFEPIME HYDROCHLORIDE
  20. DEXAMETHASONE [Concomitant]
     Active Substance: DEXAMETHASONE
  21. EPCORITAMAB [Suspect]
     Active Substance: EPCORITAMAB
     Indication: Diffuse large B-cell lymphoma stage IV
     Dosage: INTERMEDIATE DOSE, SINGLE
     Route: 058
     Dates: start: 20220519, end: 20220519
  22. EPCORITAMAB [Suspect]
     Active Substance: EPCORITAMAB
     Indication: Diffuse large B-cell lymphoma stage IV
     Dosage: FULL DOSE: 24 MILLIGRAM
     Route: 058
     Dates: start: 20220526, end: 20220526
  23. PREDNISONE [Concomitant]
     Active Substance: PREDNISONE
     Indication: Premedication
     Route: 048
     Dates: start: 20220520, end: 20220522
  24. PREDNISONE [Concomitant]
     Active Substance: PREDNISONE
     Indication: Premedication
     Route: 048
     Dates: start: 20220523
  25. ACETAMINOPHEN [Concomitant]
     Active Substance: ACETAMINOPHEN
     Route: 048
     Dates: start: 2021
  26. DIPHENHYDRAMINE [Concomitant]
     Active Substance: DIPHENHYDRAMINE
     Indication: Premedication
     Route: 048
     Dates: start: 20220519
  27. ACETAMINOPHEN [Concomitant]
     Active Substance: ACETAMINOPHEN
     Indication: Premedication
     Route: 048
     Dates: start: 20220519
  28. GEMCITABINE HYDROCHLORIDE [Suspect]
     Active Substance: GEMCITABINE HYDROCHLORIDE
     Indication: Diffuse large B-cell lymphoma stage IV
     Dosage: 1Q2W
     Route: 042
     Dates: start: 20220526, end: 20220526
  29. OXALIPLATIN [Suspect]
     Active Substance: OXALIPLATIN
     Indication: Diffuse large B-cell lymphoma stage IV
     Dosage: 1Q2W
     Route: 042
     Dates: start: 20220526, end: 20220526
  30. DIPHENHYDRAMINE [Concomitant]
     Active Substance: DIPHENHYDRAMINE
     Indication: Premedication
     Route: 048
     Dates: start: 20220526
  31. ACETAMINOPHEN [Concomitant]
     Active Substance: ACETAMINOPHEN
     Indication: Premedication
     Route: 048
     Dates: start: 20220526

REACTIONS (7)
  - Oedema peripheral [Not Recovered/Not Resolved]
  - Constipation [Not Recovered/Not Resolved]
  - Atrial fibrillation [Not Recovered/Not Resolved]
  - Haematuria [Unknown]
  - Urinary retention [Not Recovered/Not Resolved]
  - Immune effector cell-associated neurotoxicity syndrome [Fatal]
  - Cytokine release syndrome [Recovering/Resolving]

NARRATIVE: CASE EVENT DATE: 20220528
